FAERS Safety Report 7653508-X (Version None)
Quarter: 2011Q3

REPORT INFORMATION
  Report Type: 
  Country: None (occurrence: None)
  Receive Date: 20110803
  Receipt Date: 20110725
  Transmission Date: 20111222
  Serious: Yes (Hospitalization)
  Sender: FDA-Public Use
  Company Number: US-NOVOPROD-332491

PATIENT
  Sex: Female

DRUGS (1)
  1. LEVEMIR [Suspect]
     Indication: TYPE 2 DIABETES MELLITUS
     Dosage: 6 U, QD
     Route: 058
     Dates: start: 20110701

REACTIONS (5)
  - FALL [None]
  - OEDEMA PERIPHERAL [None]
  - HEART RATE IRREGULAR [None]
  - INCOHERENT [None]
  - MUSCULAR WEAKNESS [None]
